FAERS Safety Report 17508646 (Version 1)
Quarter: 2020Q1

REPORT INFORMATION
  Report Type: Spontaneous
  Country: DE (occurrence: DE)
  Receive Date: 20200306
  Receipt Date: 20200306
  Transmission Date: 20200409
  Serious: Yes (Other)
  Sender: FDA-Public Use
  Company Number: NVSC2020DE061520

PATIENT
  Age: 76 Year
  Sex: Male

DRUGS (2)
  1. MOXIFLOXACIN. [Suspect]
     Active Substance: MOXIFLOXACIN
     Indication: EYE INFECTION BACTERIAL
     Dosage: 5 MG, QID, 1 DROP
     Route: 047
  2. CANDESARTAN. [Concomitant]
     Active Substance: CANDESARTAN
     Indication: HYPERTENSION
     Dosage: 8 MG, ONCE/SINGLE
     Route: 065

REACTIONS (1)
  - Deafness [Recovered/Resolved]
